FAERS Safety Report 6468653-4 (Version None)
Quarter: 2009Q4

REPORT INFORMATION
  Report Type: 
  Country: None (occurrence: None)
  Receive Date: 20091203
  Receipt Date: 20091124
  Transmission Date: 20100525
  Serious: Yes (Hospitalization)
  Sender: FDA-Public Use
  Company Number: JP-ROCHE-658793

PATIENT
  Sex: Male
  Weight: 50 kg

DRUGS (5)
  1. ROCEPHIN [Suspect]
     Indication: PYREXIA
     Route: 041
     Dates: start: 20090827, end: 20090827
  2. SPIRIVA [Concomitant]
     Route: 055
     Dates: start: 20070607
  3. MEPTIN [Concomitant]
     Dosage: DRUG NAME REPORTED AS MEPTIN AIR
     Route: 055
     Dates: start: 20080626
  4. AMLODIPINE [Concomitant]
     Dosage: DRUG NAME REPORTED AS AMLODIN OD
     Route: 048
     Dates: start: 20090724
  5. ADOAIR [Concomitant]
     Route: 055
     Dates: start: 20081211

REACTIONS (3)
  - ANAPHYLACTOID REACTION [None]
  - DYSPNOEA [None]
  - WHEEZING [None]
